FAERS Safety Report 8471500-2 (Version None)
Quarter: 2012Q2

REPORT INFORMATION
  Report Type: 
  Country: None (occurrence: None)
  Receive Date: 20120627
  Receipt Date: 20120622
  Transmission Date: 20120825
  Serious: Yes (Other)
  Sender: FDA-Public Use
  Company Number: FR-ROCHE-1072228

PATIENT
  Sex: Female
  Weight: 65 kg

DRUGS (2)
  1. LUCENTIS [Suspect]
     Route: 050
     Dates: start: 20120118
  2. LUCENTIS [Suspect]
     Indication: AGE-RELATED MACULAR DEGENERATION
     Route: 050
     Dates: start: 20111215

REACTIONS (1)
  - ANGIOEDEMA [None]
